FAERS Safety Report 4338660-6 (Version None)
Quarter: 2004Q2

REPORT INFORMATION
  Report Type: 
  Country: None (occurrence: None)
  Receive Date: 20040409
  Receipt Date: 20040329
  Transmission Date: 20050107
  Serious: Yes (Hospitalization, Other)
  Sender: FDA-Public Use
  Company Number: 2004018017

PATIENT
  Age: 47 Year
  Sex: Female

DRUGS (1)
  1. ATORVASTATIN (ATORVASTATIN) [Suspect]
     Indication: DYSLIPIDAEMIA
     Dosage: 10 MG DAILY, ORAL
     Route: 048
     Dates: start: 20031001

REACTIONS (3)
  - BLINDNESS [None]
  - CARDIOMEGALY [None]
  - PITUITARY TUMOUR [None]
